FAERS Safety Report 23787728 (Version 1)
Quarter: 2024Q2

REPORT INFORMATION
  Report Type: Spontaneous
  Country: PL (occurrence: PL)
  Receive Date: 20240426
  Receipt Date: 20240426
  Transmission Date: 20240715
  Serious: Yes (Hospitalization, Other)
  Sender: FDA-Public Use
  Company Number: None

PATIENT
  Age: 51 Year
  Sex: Male

DRUGS (10)
  1. VALGANCICLOVIR [Suspect]
     Active Substance: VALGANCICLOVIR
     Indication: Antiviral prophylaxis
  2. TACROLIMUS [Suspect]
     Active Substance: TACROLIMUS
     Indication: Immunosuppressant drug therapy
     Dosage: TAC WAS MAINTAINED AT A DOSE THAT PROVIDED A THERAPEUTIC CONCENTRATION (SLIGHTLY ABOVE 5 NG/ML)
     Route: 048
  3. PREDNISONE [Suspect]
     Active Substance: PREDNISONE
     Indication: Immunosuppressant drug therapy
     Dosage: PREDNISONE 17.5 MG DAILY WITH A DOSE REDUCTION OF 2.5 MG EVERY 5 DAYS TO A TARGET DOSE OF 5 MG DA...
  4. PREDNISONE [Suspect]
     Active Substance: PREDNISONE
     Indication: Immunosuppressant drug therapy
     Dosage: INITIALLY 60 MG, AFTER TEM DOSES WERE REDUCED TO 30 MG ON DAY 18 OF SMX/TMP TREATMENT
  5. PREDNISONE [Suspect]
     Active Substance: PREDNISONE
     Indication: Immunosuppressant drug therapy
     Dosage: 30 MG, UNKNOWN FREQ. (ON THE 18TH DAY OF THE SMX/TMP TREATMENT)
  6. MYCOPHENOLATE MOFETIL [Suspect]
     Active Substance: MYCOPHENOLATE MOFETIL
     Indication: Immunosuppressant drug therapy
     Dosage: TOTAL DOSE OF 2 G
  7. MYCOPHENOLATE MOFETIL [Suspect]
     Active Substance: MYCOPHENOLATE MOFETIL
     Indication: Immunosuppressant drug therapy
     Dosage: 250 MG, TWICE DAILY (ON THE 24TH DAY)?DAILY DOSE: 500 MILLIGRAM
  8. MYCOPHENOLATE MOFETIL [Suspect]
     Active Substance: MYCOPHENOLATE MOFETIL
     Indication: Immunosuppressant drug therapy
     Dosage: 2 ? 500 MG. ?DAILY DOSE: 1000 MILLIGRAM
  9. METHYLPREDNISOLONE [Suspect]
     Active Substance: METHYLPREDNISOLONE
     Indication: Immunosuppressant drug therapy
     Dosage: 3 ? 40 MG/D. I.V?DAILY DOSE: 120 MILLIGRAM
     Route: 042
  10. NYSTATIN [Suspect]
     Active Substance: NYSTATIN
     Indication: Prophylaxis

REACTIONS (16)
  - Hypoxia [Recovered/Resolved]
  - Hypercapnia [Recovered/Resolved]
  - Rash maculo-papular [Recovered/Resolved]
  - Pruritus [Recovered/Resolved]
  - Pneumocystis jirovecii pneumonia [Recovered/Resolved]
  - Urinary tract infection [Recovered/Resolved]
  - Corynebacterium infection [Recovered/Resolved]
  - Oral candidiasis [Recovered/Resolved]
  - Aphthous ulcer [Recovered/Resolved]
  - Dyspnoea [Recovered/Resolved]
  - Malaise [Recovered/Resolved]
  - Dyspnoea exertional [Recovered/Resolved]
  - Cough [Recovered/Resolved]
  - Pyrexia [Recovered/Resolved]
  - Renal impairment [Unknown]
  - Fibrosis [Unknown]
